FAERS Safety Report 7468407-6 (Version None)
Quarter: 2011Q2

REPORT INFORMATION
  Report Type: 
  Country: None (occurrence: None)
  Receive Date: 20110509
  Receipt Date: 20110427
  Transmission Date: 20111010
  Serious: Yes (Life-Threatening, Hospitalization)
  Sender: FDA-Public Use
  Company Number: JP-PFIZER INC-2011097565

PATIENT
  Age: 81 Year
  Sex: Female

DRUGS (9)
  1. NU LOTAN [Concomitant]
     Dosage: 50 MG, 1X/DAY
     Route: 048
  2. RIZE [Concomitant]
     Dosage: 5 MG, 1X/DAY
     Route: 048
  3. TAKEPRON [Concomitant]
     Dosage: 15 MG, 1X/DAY
     Route: 048
  4. SIMVASTATIN [Concomitant]
     Dosage: 5 MG, 1X/DAY
     Route: 048
  5. RITUXAN [Suspect]
     Indication: DIFFUSE LARGE B-CELL LYMPHOMA
     Dosage: 540 MG, EVERY 3 WEEKS
     Route: 042
     Dates: start: 20050614, end: 20050816
  6. DOXORUBICIN HYDROCHLORIDE [Suspect]
     Indication: DIFFUSE LARGE B-CELL LYMPHOMA
     Dosage: 36 MG, EVERY 3 WEEKS
     Route: 042
     Dates: start: 20050614, end: 20050816
  7. CYCLOPHOSPHAMIDE [Suspect]
     Indication: DIFFUSE LARGE B-CELL LYMPHOMA
     Dosage: 756 MG, EVERY 3 WEEKS
     Route: 042
     Dates: start: 20050614, end: 20050816
  8. ONCOVIN [Suspect]
     Indication: DIFFUSE LARGE B-CELL LYMPHOMA
     Dosage: 1.4 MG, EVERY 3 WEEKS
     Route: 042
     Dates: start: 20050614, end: 20050816
  9. PREDNISOLONE [Suspect]
     Indication: DIFFUSE LARGE B-CELL LYMPHOMA
     Dosage: 60 MG, 4/ 3WEEK
     Route: 048
     Dates: start: 20050614, end: 20050816

REACTIONS (1)
  - INTERSTITIAL LUNG DISEASE [None]
